FAERS Safety Report 9010700 (Version 2)
Quarter: 2013Q1

REPORT INFORMATION
  Report Type: Spontaneous
  Country: DK (occurrence: FR)
  Receive Date: 20130109
  Receipt Date: 20130208
  Transmission Date: 20140127
  Serious: Yes (Hospitalization)
  Sender: FDA-Public Use
  Company Number: FR-FRI-1000041482

PATIENT
  Age: 76 Year
  Sex: Female

DRUGS (4)
  1. ESCITALOPRAM [Suspect]
     Route: 048
     Dates: start: 20110502, end: 20110523
  2. INEXIUM [Suspect]
     Dosage: 20 MG
     Route: 048
     Dates: start: 20110502
  3. LANTUS [Concomitant]
     Indication: TYPE 2 DIABETES MELLITUS
     Dates: start: 2009
  4. ATENOLOL [Concomitant]
     Indication: HYPERTENSION
     Dosage: 50 MG
     Dates: start: 2009

REACTIONS (2)
  - Rectal haemorrhage [Recovered/Resolved]
  - Drug interaction [Unknown]
